FAERS Safety Report 21648390 (Version 2)
Quarter: 2022Q4

REPORT INFORMATION
  Report Type: Report from Study
  Country: US (occurrence: US)
  Receive Date: 20221128
  Receipt Date: 20221228
  Transmission Date: 20230113
  Serious: Yes (Hospitalization)
  Sender: FDA-Public Use
  Company Number: US-TAKEDA-2022TUS021884

PATIENT
  Age: 55 Year
  Sex: Female
  Weight: 90 kg

DRUGS (29)
  1. HUMAN IMMUNOGLOBULIN G [Suspect]
     Active Substance: HUMAN IMMUNOGLOBULIN G
     Indication: Immunodeficiency common variable
     Dosage: 300 MILLIGRAM/KILOGRAM, Q4WEEKS
     Route: 042
     Dates: start: 20220322
  2. HUMAN IMMUNOGLOBULIN G [Suspect]
     Active Substance: HUMAN IMMUNOGLOBULIN G
     Dosage: 27.5 GRAM, Q4WEEKS
     Route: 042
     Dates: start: 20220322
  3. OZEMPIC [Suspect]
     Active Substance: SEMAGLUTIDE
     Indication: Insulin resistance
     Dosage: UNK
     Route: 065
  4. ACETAMINOPHEN [Concomitant]
     Active Substance: ACETAMINOPHEN
     Route: 065
  5. CYANOCOBALAMIN [Concomitant]
     Active Substance: CYANOCOBALAMIN
  6. ONDANSETRON HCL [Concomitant]
     Active Substance: ONDANSETRON HYDROCHLORIDE
  7. SODIUM CHLORIDE [Concomitant]
     Active Substance: SODIUM CHLORIDE
  8. DIPHENHYDRAMINE [Concomitant]
     Active Substance: DIPHENHYDRAMINE
  9. EPINEPHRINE [Concomitant]
     Active Substance: EPINEPHRINE
  10. FLUOROURACIL [Concomitant]
     Active Substance: FLUOROURACIL
  11. TRETINOIN [Concomitant]
     Active Substance: TRETINOIN
  12. LIDOCAINE [Concomitant]
     Active Substance: LIDOCAINE
  13. HUMIRA [Concomitant]
     Active Substance: ADALIMUMAB
  14. HYDROXYCHLOROQUINE SULFATE [Concomitant]
     Active Substance: HYDROXYCHLOROQUINE SULFATE
  15. RIZATRIPTAN [Concomitant]
     Active Substance: RIZATRIPTAN
  16. LOTEPREDNOL ETABONATE [Concomitant]
     Active Substance: LOTEPREDNOL ETABONATE
  17. ARMODAFINIL [Concomitant]
     Active Substance: ARMODAFINIL
  18. PRAVASTATIN SODIUM [Concomitant]
     Active Substance: PRAVASTATIN SODIUM
  19. FML [Concomitant]
     Active Substance: FLUOROMETHOLONE
  20. PROAIR HFA [Concomitant]
     Active Substance: ALBUTEROL SULFATE
  21. METRONIDAZOLE [Concomitant]
     Active Substance: METRONIDAZOLE
  22. AZELASTINE HYDROCHLORIDE [Concomitant]
     Active Substance: AZELASTINE HYDROCHLORIDE
  23. CANNABIS SATIVA SUBSP. INDICA TOP [Concomitant]
     Active Substance: CANNABIS SATIVA SUBSP. INDICA TOP
  24. PREDNISONE [Concomitant]
     Active Substance: PREDNISONE
  25. CETIRIZINE HYDROCHLORIDE [Concomitant]
     Active Substance: CETIRIZINE HYDROCHLORIDE
  26. IBUPROFEN [Concomitant]
     Active Substance: IBUPROFEN
  27. ROSUVASTATIN [Concomitant]
     Active Substance: ROSUVASTATIN
  28. FLONASE ALLERGY RELIEF [Concomitant]
     Active Substance: FLUTICASONE PROPIONATE
  29. LISINOPRIL [Concomitant]
     Active Substance: LISINOPRIL

REACTIONS (7)
  - Post procedural infection [Unknown]
  - Staphylococcal infection [Unknown]
  - Eye pruritus [Unknown]
  - COVID-19 [Not Recovered/Not Resolved]
  - Illness [Unknown]
  - Eye swelling [Unknown]
  - Glomerular filtration rate decreased [Unknown]

NARRATIVE: CASE EVENT DATE: 20220513
